FAERS Safety Report 8395520-1 (Version None)
Quarter: 2012Q2

REPORT INFORMATION
  Report Type: 
  Country: None (occurrence: None)
  Receive Date: 20120530
  Receipt Date: 20110603
  Transmission Date: 20120825
  Serious: No
  Sender: FDA-Public Use
  Company Number: US-GLAXOSMITHKLINE-A0930178A

PATIENT
  Age: 51 Year
  Sex: Female

DRUGS (8)
  1. PROZAC [Concomitant]
  2. ENABLEX [Concomitant]
  3. ANTI-CHOLESTEROL MEDICATION [Concomitant]
  4. ALBUTEROL [Concomitant]
  5. ADVAIR DISKUS 100/50 [Concomitant]
  6. SINGULAIR [Concomitant]
  7. PREMPRO [Concomitant]
  8. VENTOLIN [Suspect]
     Indication: ASTHMA
     Dosage: 2PUFF SIX TIMES PER DAY
     Route: 055
     Dates: start: 20090101

REACTIONS (2)
  - PRODUCT QUALITY ISSUE [None]
  - DYSPNOEA [None]
